FAERS Safety Report 24332484 (Version 1)
Quarter: 2024Q3

REPORT INFORMATION
  Report Type: Spontaneous
  Country: US (occurrence: None)
  Receive Date: 20240916
  Receipt Date: 20240916
  Transmission Date: 20241016
  Serious: Yes (Hospitalization, Disabling)
  Sender: Public
  Company Number: None

PATIENT
  Age: 34 Year
  Sex: Female
  Weight: 56.7 kg

DRUGS (11)
  1. BOTOX [Suspect]
     Active Substance: ONABOTULINUMTOXINA
  2. VITAMIN D [Concomitant]
     Active Substance: VITAMIN D NOS
  3. MAGNESIUM [Concomitant]
     Active Substance: MAGNESIUM
  4. VITAMIN K [Concomitant]
     Active Substance: PHYTONADIONE
  5. L-GLUTAMINE [Concomitant]
     Active Substance: GLUTAMINE
  6. DIETARY SUPPLEMENT\RESVERATROL [Concomitant]
     Active Substance: DIETARY SUPPLEMENT\RESVERATROL
  7. HYALURONIC ACID [Concomitant]
     Active Substance: HYALURONIC ACID
  8. HERBALS\WITHANIA SOMNIFERA ROOT [Concomitant]
     Active Substance: HERBALS\WITHANIA SOMNIFERA ROOT
  9. HERBALS [Concomitant]
     Active Substance: HERBALS
  10. DIETARY SUPPLEMENT [Concomitant]
     Active Substance: DIETARY SUPPLEMENT
  11. functional mushrooms (chaga, lion^s mane, cordyceps, turkey tail, red [Concomitant]

REACTIONS (17)
  - Presyncope [None]
  - Post procedural complication [None]
  - Nausea [None]
  - Chest pain [None]
  - Dyspnoea [None]
  - Feeling abnormal [None]
  - Sensory disturbance [None]
  - Muscular weakness [None]
  - Tremor [None]
  - Brain fog [None]
  - Dizziness [None]
  - Dizziness [None]
  - Partial seizures [None]
  - Fall [None]
  - Blood test abnormal [None]
  - Aphasia [None]
  - Paraesthesia oral [None]

NARRATIVE: CASE EVENT DATE: 20240914
